FAERS Safety Report 8083910-6 (Version None)
Quarter: 2012Q1

REPORT INFORMATION
  Report Type: 
  Country: None (occurrence: None)
  Receive Date: 20120128
  Receipt Date: 20110113
  Transmission Date: 20120608
  Serious: No
  Sender: FDA-Public Use
  Company Number: US-ABBOTT-11P-163-0697365-00

PATIENT
  Age: 42 Year
  Sex: Female

DRUGS (4)
  1. HUMIRA [Suspect]
     Indication: CROHN'S DISEASE
     Dates: start: 20101201
  2. LORTAB [Concomitant]
     Indication: NECK PAIN
     Dosage: 5/500MG AS NEEDED DAILY
  3. LORTAB [Concomitant]
     Indication: INTERVERTEBRAL DISC PROTRUSION
  4. VALTREX [Concomitant]
     Indication: SKIN DISORDER

REACTIONS (1)
  - ARTHRALGIA [None]
